FAERS Safety Report 5994969-1 (Version None)
Quarter: 2008Q4

REPORT INFORMATION
  Report Type: 
  Country: None (occurrence: None)
  Receive Date: 20081212
  Receipt Date: 20080918
  Transmission Date: 20090506
  Serious: No
  Sender: FDA-Public Use
  Company Number: US-ABBOTT-08P-163-0477178-00

PATIENT
  Sex: Female
  Weight: 55.842 kg

DRUGS (1)
  1. HUMIRA [Suspect]
     Indication: CROHN'S DISEASE
     Dates: start: 20080618

REACTIONS (5)
  - CHEST DISCOMFORT [None]
  - DIZZINESS [None]
  - FATIGUE [None]
  - HYPOVENTILATION [None]
  - MALAISE [None]
